FAERS Safety Report 7003970-0 (Version None)
Quarter: 2010Q3

REPORT INFORMATION
  Report Type: 
  Country: None (occurrence: None)
  Receive Date: 20100920
  Receipt Date: 20100107
  Transmission Date: 20110219
  Serious: No
  Sender: FDA-Public Use
  Company Number: US-WYE-H12912410

PATIENT
  Sex: Female
  Weight: 63.56 kg

DRUGS (4)
  1. PRISTIQ [Suspect]
     Indication: DEPRESSION
     Route: 048
     Dates: start: 20090101, end: 20090401
  2. PRISTIQ [Suspect]
     Route: 048
     Dates: start: 20091001
  3. PRILOSEC [Concomitant]
  4. BUSPAR [Concomitant]

REACTIONS (1)
  - PANIC ATTACK [None]
